FAERS Safety Report 14367681 (Version 1)
Quarter: 2018Q1

REPORT INFORMATION
  Report Type: Report from Study
  Country: PL (occurrence: PL)
  Receive Date: 20180109
  Receipt Date: 20180109
  Transmission Date: 20180509
  Serious: Yes (Hospitalization, Other)
  Sender: FDA-Public Use
  Company Number: PL-EXELIXIS-XL18417011878

PATIENT
  Age: 23 Year
  Sex: Female
  Weight: 44.8 kg

DRUGS (9)
  1. BLINDED XL184 [Suspect]
     Active Substance: CABOZANTINIB
     Indication: MEDULLARY THYROID CANCER
     Dosage: UNK
     Dates: start: 20170809
  2. BLINDED XL184 [Suspect]
     Active Substance: CABOZANTINIB
     Indication: MEDULLARY THYROID CANCER
     Dosage: UNK
     Dates: start: 20170809
  3. ALFADIOL [Concomitant]
     Active Substance: ALFACALCIDOL
  4. CORTINEFF [Concomitant]
  5. CALPEROS [Concomitant]
     Active Substance: CALCIUM CARBONATE
  6. MAGNE B6 [Concomitant]
     Active Substance: MAGNESIUM\PYRIDOXINE
  7. LETROX [Concomitant]
     Active Substance: LEVOTHYROXINE SODIUM
  8. AMITRIPTYLINUM [Concomitant]
  9. HYDROCORTISON [Concomitant]
     Active Substance: HYDROCORTISONE

REACTIONS (1)
  - Adrenal insufficiency [Recovered/Resolved]

NARRATIVE: CASE EVENT DATE: 20171229
